FAERS Safety Report 5827230-6 (Version None)
Quarter: 2008Q3

REPORT INFORMATION
  Report Type: 
  Country: None (occurrence: None)
  Receive Date: 20080730
  Receipt Date: 20080707
  Transmission Date: 20090109
  Serious: Yes (Other)
  Sender: FDA-Public Use
  Company Number: US-MERCK-0804USA04537

PATIENT
  Age: 42 Year
  Sex: Female
  Weight: 66 kg

DRUGS (4)
  1. SINGULAIR [Suspect]
     Indication: RHINITIS ALLERGIC
     Route: 048
     Dates: start: 20080410, end: 20080422
  2. SINGULAIR [Suspect]
     Indication: ASTHMA
     Route: 048
     Dates: start: 20080410, end: 20080422
  3. PROAIR HFA [Concomitant]
     Route: 065
  4. FLONASE [Concomitant]
     Route: 065

REACTIONS (3)
  - DEPRESSION [None]
  - MOOD ALTERED [None]
  - SUICIDAL IDEATION [None]
